FAERS Safety Report 10032168 (Version 2)
Quarter: 2014Q2

REPORT INFORMATION
  Report Type: Spontaneous
  Country: ES (occurrence: ES)
  Receive Date: 20140324
  Receipt Date: 20140506
  Transmission Date: 20141212
  Serious: Yes (Life-Threatening, Hospitalization)
  Sender: FDA-Public Use
  Company Number: ES-SA-2014SA032887

PATIENT
  Age: 56 Year
  Sex: Male

DRUGS (9)
  1. CLEXANE [Suspect]
     Indication: THROMBOSIS PROPHYLAXIS
     Dosage: 60MG SC
     Route: 058
     Dates: start: 20130419, end: 20130514
  2. NAPROXEN [Suspect]
     Indication: PAIN
     Dosage: 1-1-1
     Route: 048
     Dates: start: 20130510, end: 20130514
  3. NAPROXEN [Suspect]
     Indication: BONE PAIN
     Dosage: 1-1-1
     Route: 048
     Dates: start: 20130510, end: 20130514
  4. BEZAFIBRATE [Suspect]
     Indication: DYSLIPIDAEMIA
     Dosage: STRENGTH: 400MG TABEXT
     Route: 048
     Dates: start: 20130510, end: 20130514
  5. SULFASALAZINE [Suspect]
     Indication: PSORIATIC ARTHROPATHY
     Dosage: 2-0-2
     Route: 048
     Dates: start: 20130405, end: 20130514
  6. SINERGINA [Concomitant]
     Indication: EPILEPSY
     Dosage: 1-0-1; 100 MG COMPRIMIDOS, 100 COMPRIMIDOS
     Route: 048
  7. DEPAKINE [Concomitant]
     Indication: EPILEPSY
     Dosage: 1-0-1-0;?200 MG COMPRIMIDOS GASTRORRESISTENTES , 40 COMPRIMIDOS
     Route: 048
     Dates: start: 1993
  8. ENBREL [Concomitant]
     Indication: PSORIATIC ARTHROPATHY
     Dosage: 1AMP SC LOS JUEVES;??50 MG SOLUCION INYECTABLE EN JERINGAS PRECARGADAS, 4 JERINGAS P
     Route: 058
     Dates: start: 201303
  9. NEOTIGASON [Concomitant]
     Indication: PSORIASIS
     Dosage: 2 CPS EN CENA;?10 MG CAPSULAS, 30 CAPSULAS
     Route: 048
     Dates: start: 201303, end: 20130514

REACTIONS (3)
  - Oesophagitis [Not Recovered/Not Resolved]
  - Shock haemorrhagic [Recovered/Resolved]
  - Oesophageal haemorrhage [Not Recovered/Not Resolved]
